FAERS Safety Report 6419047-9 (Version None)
Quarter: 2009Q4

REPORT INFORMATION
  Report Type: 
  Country: None (occurrence: None)
  Receive Date: 20091027
  Receipt Date: 20091011
  Transmission Date: 20100525
  Serious: Yes (Other)
  Sender: FDA-Public Use
  Company Number: 2009-4211

PATIENT
  Sex: 0

DRUGS (1)
  1. SOMATULINE AUTOGEL 120MG (LANREOTIDE) (LANREOTIDE ACETATE) [Suspect]
     Indication: CARCINOID SYNDROME

REACTIONS (2)
  - CONFUSIONAL STATE [None]
  - LOSS OF CONSCIOUSNESS [None]
